FAERS Safety Report 7037580-6 (Version None)
Quarter: 2010Q4

REPORT INFORMATION
  Report Type: 
  Country: None (occurrence: None)
  Receive Date: 20101011
  Receipt Date: 20100927
  Transmission Date: 20110411
  Serious: Yes (Other)
  Sender: FDA-Public Use
  Company Number: PHEH2006US15189

PATIENT
  Sex: Male

DRUGS (4)
  1. ZOMETA [Suspect]
     Dosage: UNK, UNK
  2. CHEMOTHERAPEUTICS NOS [Suspect]
     Dosage: UNK, UNK
  3. GLEEVEC [Concomitant]
  4. PRILOSEC [Concomitant]

REACTIONS (7)
  - ANXIETY [None]
  - BONE DISORDER [None]
  - DECREASED INTEREST [None]
  - GENERAL PHYSICAL HEALTH DETERIORATION [None]
  - OSTEONECROSIS OF JAW [None]
  - PAIN [None]
  - TOOTH DISORDER [None]
